FAERS Safety Report 9026576 (Version 1)
Quarter: 2013Q1

REPORT INFORMATION
  Report Type: Spontaneous
  Country: US (occurrence: None)
  Receive Date: 20130107
  Receipt Date: 20130107
  Transmission Date: 20140127
  Serious: Yes (Other)
  Sender: FDA-Public Use
  Company Number: 2012-00217

PATIENT
  Age: 60 Year
  Sex: Male

DRUGS (3)
  1. ZICAM COLD REMEDY RAPIDMELTS [Suspect]
     Indication: NASOPHARYNGITIS
     Route: 048
     Dates: start: 20121223, end: 20121225
  2. PROPAFENONE [Concomitant]
  3. DILTIAZEM [Concomitant]

REACTIONS (2)
  - Heart rate increased [None]
  - Atrial fibrillation [None]
